FAERS Safety Report 6173930-0 (Version None)
Quarter: 2009Q2

REPORT INFORMATION
  Report Type: 
  Country: None (occurrence: None)
  Receive Date: 20090430
  Receipt Date: 20090428
  Transmission Date: 20091009
  Serious: Yes (Hospitalization, Other)
  Sender: FDA-Public Use
  Company Number: GB-ELI_LILLY_AND_COMPANY-GB200901000897

PATIENT
  Sex: Female
  Weight: 1.04 kg

DRUGS (3)
  1. GEMZAR [Suspect]
     Indication: NON-SMALL CELL LUNG CANCER
     Dosage: 1000 MG/M2, OTHER
     Route: 064
  2. CARBOPLATIN [Concomitant]
     Dosage: AUC 5, ON DAY 1
     Route: 064
  3. CORTICOSTEROID NOS [Concomitant]
     Dosage: UNK, UNKNOWN
     Route: 064

REACTIONS (7)
  - ANAEMIA [None]
  - DRUG EXPOSURE DURING PREGNANCY [None]
  - FOETAL-MATERNAL HAEMORRHAGE [None]
  - LUNG CONSOLIDATION [None]
  - LUNG DISORDER [None]
  - PREMATURE BABY [None]
  - STAPHYLOCOCCAL SEPSIS [None]
